FAERS Safety Report 5499405-X (Version None)
Quarter: 2007Q4

REPORT INFORMATION
  Report Type: 
  Country: None (occurrence: None)
  Receive Date: 20071026
  Receipt Date: 20071022
  Transmission Date: 20080405
  Serious: Yes (Hospitalization)
  Sender: FDA-Public Use
  Company Number: B0491147A

PATIENT
  Age: 63 Year
  Sex: Female

DRUGS (6)
  1. VALTREX [Suspect]
     Indication: HERPES ZOSTER
     Dosage: 1000MG THREE TIMES PER DAY
     Route: 048
     Dates: start: 20071001, end: 20071003
  2. LOXONIN [Concomitant]
     Route: 065
  3. METHYCOBAL [Concomitant]
     Route: 065
  4. MUCOSTA [Concomitant]
     Route: 048
  5. NORVASC [Concomitant]
     Route: 048
  6. PLAVIX [Concomitant]
     Route: 048

REACTIONS (3)
  - DIZZINESS [None]
  - NAUSEA [None]
  - RENAL DISORDER [None]
